FAERS Safety Report 25641918 (Version 1)
Quarter: 2025Q3

REPORT INFORMATION
  Report Type: Report from Study
  Country: US (occurrence: US)
  Receive Date: 20250804
  Receipt Date: 20250804
  Transmission Date: 20251021
  Serious: Yes (Other)
  Sender: ABBVIE
  Company Number: US-ABBVIE-6398401

PATIENT
  Age: 76 Year
  Sex: Female

DRUGS (1)
  1. SKYRIZI [Suspect]
     Active Substance: RISANKIZUMAB-RZAA
     Indication: Product used for unknown indication
     Route: 058
     Dates: start: 202504

REACTIONS (5)
  - Surgery [Unknown]
  - Drug ineffective [Not Recovered/Not Resolved]
  - Post procedural inflammation [Not Recovered/Not Resolved]
  - Haemorrhage [Not Recovered/Not Resolved]
  - Abnormal faeces [Not Recovered/Not Resolved]

NARRATIVE: CASE EVENT DATE: 20250101
